FAERS Safety Report 7198555-X (Version None)
Quarter: 2010Q4

REPORT INFORMATION
  Report Type: 
  Country: None (occurrence: None)
  Receive Date: 20101203
  Receipt Date: 20101122
  Transmission Date: 20110411
  Serious: Yes (Other)
  Sender: FDA-Public Use
  Company Number: B0686671A

PATIENT
  Age: 35 Year
  Sex: Female

DRUGS (3)
  1. ERYTHROMYCIN [Suspect]
     Indication: ROSACEA
  2. PREDNISOLONE [Suspect]
     Indication: ROSACEA
  3. DIAZEPAM [Suspect]
     Indication: ANXIETY
     Dosage: ORAL
     Route: 048

REACTIONS (5)
  - ABORTION INDUCED [None]
  - AGITATION [None]
  - ANXIETY [None]
  - DEPRESSION [None]
  - DRUG EXPOSURE DURING PREGNANCY [None]
